FAERS Safety Report 7031111-2 (Version None)
Quarter: 2010Q4

REPORT INFORMATION
  Report Type: 
  Country: None (occurrence: None)
  Receive Date: 20101001
  Receipt Date: 20101001
  Transmission Date: 20110411
  Serious: Yes (Death)
  Sender: FDA-Public Use
  Company Number: 2010P1001654

PATIENT
  Sex: Female

DRUGS (3)
  1. AMMONAPS POWDER [Suspect]
     Indication: AMINO ACID METABOLISM DISORDER
  2. CON MEDS [Concomitant]
  3. PREV MEDS [Concomitant]

REACTIONS (2)
  - BRAIN OEDEMA [None]
  - COMA [None]
